FAERS Safety Report 11740050 (Version 2)
Quarter: 2015Q4

REPORT INFORMATION
  Report Type: Spontaneous
  Country: US (occurrence: US)
  Receive Date: 20151110
  Receipt Date: 20151120
  Transmission Date: 20160304
  Serious: No
  Sender: FDA-Public Use
  Company Number: US-ELI_LILLY_AND_COMPANY-US201207003808

PATIENT
  Age: 63 Year
  Sex: Female

DRUGS (4)
  1. FORTEO [Suspect]
     Active Substance: TERIPARATIDE
     Dosage: 20 UG, QD
     Route: 065
  2. FORTEO [Suspect]
     Active Substance: TERIPARATIDE
     Dosage: 20 UG, QD
     Route: 065
  3. FORTEO [Suspect]
     Active Substance: TERIPARATIDE
     Indication: OSTEOPOROSIS
     Dosage: 20 UG, QD
     Route: 065
     Dates: start: 20120601
  4. FORTEO [Suspect]
     Active Substance: TERIPARATIDE
     Dosage: 20 UG, QD
     Route: 065

REACTIONS (14)
  - Pain in extremity [Unknown]
  - Dizziness [Unknown]
  - Thyroid disorder [Unknown]
  - Malaise [Unknown]
  - Nausea [Unknown]
  - Medication error [Unknown]
  - Incorrect product storage [Unknown]
  - Abdominal discomfort [Unknown]
  - Nausea [Recovered/Resolved]
  - Muscle spasms [Unknown]
  - Bone pain [Unknown]
  - Back pain [Unknown]
  - Dizziness [Recovered/Resolved]
  - Arthralgia [Unknown]

NARRATIVE: CASE EVENT DATE: 20120707
